FAERS Safety Report 9325380 (Version 1)
Quarter: 2013Q2

REPORT INFORMATION
  Report Type: Spontaneous
  Country: JP (occurrence: JP)
  Receive Date: 20130604
  Receipt Date: 20130604
  Transmission Date: 20140414
  Serious: Yes (Other)
  Sender: FDA-Public Use
  Company Number: JP-ROCHE-1231709

PATIENT
  Sex: Male

DRUGS (2)
  1. LUCENTIS [Suspect]
     Indication: AGE-RELATED MACULAR DEGENERATION
     Route: 050
  2. TETRYZOLINE HYDROCHLORIDE [Concomitant]
     Route: 065

REACTIONS (3)
  - Syncope [Unknown]
  - Eye pain [Recovered/Resolved]
  - Visual acuity reduced [Unknown]
